FAERS Safety Report 10102993 (Version 3)
Quarter: 2014Q2

REPORT INFORMATION
  Report Type: Report from Study
  Country: CO (occurrence: CO)
  Receive Date: 20140424
  Receipt Date: 20140521
  Transmission Date: 20141212
  Serious: Yes (Hospitalization, Other)
  Sender: FDA-Public Use
  Company Number: CO-BRISTOL-MYERS SQUIBB COMPANY-20217949

PATIENT
  Age: 53 Year
  Sex: Female

DRUGS (2)
  1. IXEMPRA [Suspect]
     Indication: BREAST CANCER METASTATIC
     Dosage: 27JAN14?80MG
     Route: 042
     Dates: start: 20131211, end: 20140404
  2. CAPECITABINE [Concomitant]

REACTIONS (5)
  - Malignant neoplasm progression [Recovered/Resolved]
  - Diarrhoea [Recovered/Resolved]
  - Abdominal pain [Recovered/Resolved]
  - Convulsion [Recovering/Resolving]
  - Paralysis [Recovering/Resolving]
